FAERS Safety Report 9627144 (Version 3)
Quarter: 2013Q4

REPORT INFORMATION
  Report Type: Report from Study
  Country: DE (occurrence: DE)
  Receive Date: 20131016
  Receipt Date: 20131202
  Transmission Date: 20140711
  Serious: Yes (Hospitalization, Other)
  Sender: FDA-Public Use
  Company Number: PHHY2013DE108284

PATIENT
  Age: 63 Year
  Sex: Female
  Weight: 51 kg

DRUGS (6)
  1. CGP 57148B [Suspect]
     Indication: GASTROINTESTINAL STROMAL TUMOUR
     Dosage: 400 MG, QD
     Route: 048
     Dates: start: 20110920
  2. KREON [Concomitant]
     Indication: PANCREATIC DISORDER
     Dosage: 25000 U, TID
     Route: 048
     Dates: start: 20110828
  3. KREON [Concomitant]
     Indication: SURGERY
  4. TRAMADOL [Concomitant]
     Indication: PAIN
     Dosage: 100 MG, QD
     Route: 048
     Dates: start: 20130827
  5. VITAMIN B12 [Concomitant]
     Indication: GASTRECTOMY
     Dosage: 1000 EVERY 4 WEEKS
     Route: 030
     Dates: start: 20130402
  6. LOPERAMIDE [Concomitant]
     Indication: DIARRHOEA
     Dosage: 2 MG PER DAY ON DEMAND
     Route: 048
     Dates: start: 20111007

REACTIONS (4)
  - Fall [Not Recovered/Not Resolved]
  - Femoral neck fracture [Recovering/Resolving]
  - Hepatic steatosis [Unknown]
  - Pancreatic steatosis [Unknown]
